FAERS Safety Report 16595349 (Version 1)
Quarter: 2019Q3

REPORT INFORMATION
  Report Type: Report from Study
  Country: None (occurrence: BR)
  Receive Date: 20190718
  Receipt Date: 20190718
  Transmission Date: 20191004
  Serious: Yes (Hospitalization, Disabling, Other)
  Sender: FDA-Public Use
  Company Number: BR-ABBVIE-19K-020-2852787-00

PATIENT
  Age: 64 Year
  Sex: Female
  Weight: 81 kg

DRUGS (10)
  1. HUMIRA [Suspect]
     Active Substance: ADALIMUMAB
     Indication: COLITIS ULCERATIVE
     Dosage: LOADING DOSE WEEK 0
     Route: 058
     Dates: start: 20170901, end: 20170901
  2. MESALAZINE [Suspect]
     Active Substance: MESALAMINE
     Indication: COLITIS ULCERATIVE
     Route: 065
  3. HUMIRA [Suspect]
     Active Substance: ADALIMUMAB
     Route: 058
  4. HUMIRA [Suspect]
     Active Substance: ADALIMUMAB
     Dosage: LOADING DOSE WEEK 2
     Route: 058
     Dates: start: 201709, end: 201709
  5. DIPYRONE [Concomitant]
     Active Substance: DIPYRONE
     Indication: ABDOMINAL PAIN UPPER
  6. DIPYRONE [Concomitant]
     Active Substance: DIPYRONE
     Route: 042
     Dates: start: 20190502, end: 20190514
  7. HUMIRA [Suspect]
     Active Substance: ADALIMUMAB
     Route: 058
     Dates: end: 20190601
  8. MESALAZINE [Suspect]
     Active Substance: MESALAMINE
     Route: 042
     Dates: start: 20190502, end: 20190514
  9. OMEPRAZOLE. [Suspect]
     Active Substance: OMEPRAZOLE
     Indication: GASTRITIS
     Route: 065
  10. OMEPRAZOLE. [Suspect]
     Active Substance: OMEPRAZOLE
     Indication: ABDOMINAL PAIN UPPER
     Route: 042
     Dates: start: 20190502, end: 20190514

REACTIONS (26)
  - Decreased appetite [Recovered/Resolved]
  - Musculoskeletal stiffness [Not Recovered/Not Resolved]
  - Musculoskeletal chest pain [Recovered/Resolved]
  - Intestinal polyp [Recovering/Resolving]
  - Abdominal pain [Recovered/Resolved]
  - Pleural effusion [Recovered/Resolved]
  - Abdominal pain [Recovered/Resolved]
  - Immunodeficiency [Recovering/Resolving]
  - Gastrointestinal inflammation [Recovering/Resolving]
  - Arthralgia [Recovering/Resolving]
  - Gait inability [Recovered/Resolved]
  - Chest pain [Recovered/Resolved]
  - Pain in extremity [Not Recovered/Not Resolved]
  - Insomnia [Recovered/Resolved]
  - Arthralgia [Not Recovered/Not Resolved]
  - Arthralgia [Unknown]
  - Swelling [Recovered/Resolved]
  - Nervousness [Unknown]
  - Colitis ulcerative [Recovering/Resolving]
  - Gastritis [Recovered/Resolved]
  - Diarrhoea [Not Recovered/Not Resolved]
  - Pneumonia [Recovered/Resolved]
  - Bedridden [Unknown]
  - Mobility decreased [Recovered/Resolved]
  - Weight decreased [Recovered/Resolved]
  - Pyrexia [Recovered/Resolved]

NARRATIVE: CASE EVENT DATE: 201903
